FAERS Safety Report 9160187 (Version 1)
Quarter: 2013Q1

REPORT INFORMATION
  Report Type: Spontaneous
  Country: FR (occurrence: None)
  Receive Date: 20130219
  Receipt Date: 20130219
  Transmission Date: 20140127
  Serious: Yes (Hospitalization)
  Sender: FDA-Public Use
  Company Number: DSM-2013-00187

PATIENT
  Age: 76 Year
  Sex: Male

DRUGS (7)
  1. COOLMETEC (HYDROCHLOROTHIAZIDE, OLMESARTAN MEDOXOMIL) (TABLET) (HYDROCHLOROTHIAZIDE, OLMESARTAN MEDOXOMIL) [Suspect]
     Indication: HYPERTENSION
     Route: 048
     Dates: end: 200808
  2. TAMSULOSINE SANDOZ (TAMSULOSIN HYDROCHLORIDE) (0.4 MILLIGRAM, CAPSULE) (TAMSULOSIN HYDROCHLORIDE) [Suspect]
     Indication: BENIGN PROSTATIC HYPERPLASIA
     Route: 048
  3. MONONAXY (CLARITHROMYCIN) 500 MILLIGRAM) (CLARITHROMYCIN) [Suspect]
     Dates: start: 20080813, end: 20080817
  4. PREDNISOLONE (PREDNISOLONE) (20 MILLIGRAM) (PREDNISOLONE) [Suspect]
     Dates: start: 20080813, end: 20080817
  5. ZOLPIDEM (ZOLPIDEM) (10 MILLIGRAM) (ZOLPIDEM) [Concomitant]
  6. TRIMETAZIDINE (TRIMETAZIDINE) (20 MILLIGRAM) (TRIMETAZIDINE) [Concomitant]
  7. DOLIPRANE (PARACETAMOL) (500 MILLIGRAM) (PARACETAMOL) [Concomitant]

REACTIONS (4)
  - Orthostatic hypotension [None]
  - Vision blurred [None]
  - Atrial fibrillation [None]
  - Bundle branch block right [None]
